FAERS Safety Report 25349462 (Version 5)
Quarter: 2025Q3

REPORT INFORMATION
  Report Type: Spontaneous
  Country: EU (occurrence: EU)
  Receive Date: 20250522
  Receipt Date: 20250718
  Transmission Date: 20251020
  Serious: Yes (Congenital Anomaly, Other)
  Sender: ABBVIE
  Company Number: EU-ABBVIE-6293773

PATIENT
  Sex: Male

DRUGS (1)
  1. DEPAKOTE [Suspect]
     Active Substance: DIVALPROEX SODIUM
     Indication: Maternal exposure timing unspecified
     Route: 064

REACTIONS (4)
  - Blindness congenital [Unknown]
  - Microphthalmos [Unknown]
  - Foetal exposure during pregnancy [Unknown]
  - Congenital anomaly [Unknown]
